FAERS Safety Report 24903424 (Version 1)
Quarter: 2025Q1

REPORT INFORMATION
  Report Type: Spontaneous
  Country: GB (occurrence: GB)
  Receive Date: 20250130
  Receipt Date: 20250130
  Transmission Date: 20250409
  Serious: Yes (Other)
  Sender: TEVA
  Company Number: GB-MHRA-TPP23317898C8763430YC1737479673794

PATIENT
  Age: 85 Year
  Sex: Male
  Weight: 64 kg

DRUGS (16)
  1. DOXYCYCLINE [Suspect]
     Active Substance: DOXYCYCLINE
     Indication: Ill-defined disorder
     Route: 065
     Dates: start: 20241231
  2. LANSOPRAZOLE [Concomitant]
     Active Substance: LANSOPRAZOLE
     Indication: Ill-defined disorder
     Dates: start: 20250114
  3. PROPRANOLOL [Concomitant]
     Active Substance: PROPRANOLOL HYDROCHLORIDE
     Indication: Ill-defined disorder
     Dates: start: 20240906
  4. OCTENILIN [Concomitant]
     Indication: Ill-defined disorder
     Dates: start: 20250102, end: 20250103
  5. ACETAMINOPHEN [Concomitant]
     Active Substance: ACETAMINOPHEN
     Indication: Ill-defined disorder
     Dates: start: 20240906
  6. BENDROFLUMETHIAZIDE [Concomitant]
     Active Substance: BENDROFLUMETHIAZIDE
     Indication: Ill-defined disorder
     Dates: start: 20240906, end: 20250114
  7. CLARITHROMYCIN [Concomitant]
     Active Substance: CLARITHROMYCIN
     Indication: Ill-defined disorder
     Dates: start: 20250114, end: 20250119
  8. FLAMINAL HYDRO [Concomitant]
     Indication: Ill-defined disorder
     Dates: start: 20241127, end: 20241128
  9. ALLEVYN LIFE [Concomitant]
     Indication: Ill-defined disorder
     Dates: start: 20241216, end: 20241217
  10. HYDROCORTISONE [Concomitant]
     Active Substance: HYDROCORTISONE
     Indication: Ill-defined disorder
     Dates: start: 20241129, end: 20241206
  11. AMOXICILLIN [Concomitant]
     Active Substance: AMOXICILLIN
     Indication: Ill-defined disorder
     Dates: start: 20250107, end: 20250112
  12. FOLIC ACID [Concomitant]
     Active Substance: FOLIC ACID
     Indication: Ill-defined disorder
     Dates: start: 20240906
  13. 3M CAVILON ANTIFUNGAL [Concomitant]
     Active Substance: MICONAZOLE NITRATE
     Indication: Ill-defined disorder
     Dates: start: 20241224, end: 20241225
  14. ALLEVYN GENTLE BORDER [Concomitant]
     Indication: Ill-defined disorder
     Dates: start: 20250102, end: 20250103
  15. PREDNISOLONE [Concomitant]
     Active Substance: PREDNISOLONE
     Indication: Ill-defined disorder
     Dates: start: 20250114, end: 20250119
  16. DOXAZOSIN [Concomitant]
     Active Substance: DOXAZOSIN MESYLATE
     Indication: Ill-defined disorder
     Dates: start: 20240906

REACTIONS (3)
  - Dizziness [Recovered/Resolved]
  - Malaise [Unknown]
  - Balance disorder [Unknown]
